FAERS Safety Report 25169276 (Version 2)
Quarter: 2025Q2

REPORT INFORMATION
  Report Type: Spontaneous
  Country: US (occurrence: US)
  Receive Date: 20250407
  Receipt Date: 20250417
  Transmission Date: 20250716
  Serious: Yes (Life-Threatening, Hospitalization)
  Sender: TEVA
  Company Number: US-TEVA-VS-3317152

PATIENT
  Age: 65 Year
  Sex: Female

DRUGS (4)
  1. METHYLPREDNISOLONE [Suspect]
     Active Substance: METHYLPREDNISOLONE
     Indication: Myocarditis
     Route: 065
  2. NIVOLUMAB [Suspect]
     Active Substance: NIVOLUMAB
     Indication: Mediastinum neoplasm
     Route: 065
  3. CISPLATIN [Concomitant]
     Active Substance: CISPLATIN
     Indication: Mediastinum neoplasm
     Route: 065
  4. GEMCITABINE [Concomitant]
     Active Substance: GEMCITABINE
     Indication: Mediastinum neoplasm
     Route: 065

REACTIONS (6)
  - Myocarditis [Unknown]
  - Myositis [Unknown]
  - Ventricular hypokinesia [Unknown]
  - Myasthenia gravis [Unknown]
  - Drug ineffective [Unknown]
  - Atrioventricular block complete [Unknown]
